FAERS Safety Report 14371898 (Version 3)
Quarter: 2018Q1

REPORT INFORMATION
  Report Type: Spontaneous
  Country: US (occurrence: US)
  Receive Date: 20180110
  Receipt Date: 20180118
  Transmission Date: 20180509
  Serious: Yes (Death, Hospitalization, Other)
  Sender: FDA-Public Use
  Company Number: US-PFIZER INC-2899860

PATIENT
  Age: 58 Year
  Sex: Female
  Weight: 90 kg

DRUGS (5)
  1. EPIPEN [Suspect]
     Active Substance: EPINEPHRINE
     Indication: ANAPHYLACTIC REACTION
     Dosage: 0.3 MG, UNK
     Route: 030
     Dates: start: 20150602, end: 20150602
  2. DEPO-MEDROL [Suspect]
     Active Substance: METHYLPREDNISOLONE ACETATE
     Indication: SINUSITIS
     Dosage: 100 MG, SINGLE
     Route: 030
     Dates: start: 20150602, end: 20150602
  3. LIDOCAINE HCL [Suspect]
     Active Substance: LIDOCAINE HYDROCHLORIDE
     Indication: SINUSITIS
     Dosage: UNK, SINGLE
     Route: 030
     Dates: start: 20150602, end: 20150602
  4. CEFTRIAXONE SODIUM. [Suspect]
     Active Substance: CEFTRIAXONE SODIUM
     Indication: SINUSITIS
     Dosage: 1 G, SINGLE
     Route: 030
     Dates: start: 20150602, end: 20150602
  5. VITAMIN B12 [Suspect]
     Active Substance: CYANOCOBALAMIN
     Indication: FATIGUE
     Dosage: 1000 UG, ONCE, FOR A WHILE ;INTO LEFT SHOULDER
     Route: 030
     Dates: start: 20150602, end: 20150602

REACTIONS (12)
  - Rash generalised [Fatal]
  - Cardiac arrest [Fatal]
  - Injection site indentation [Unknown]
  - Anaphylactic shock [Fatal]
  - Sinusitis [Unknown]
  - Pruritus [Fatal]
  - Loss of consciousness [Fatal]
  - Sudden visual loss [Fatal]
  - Anaphylactic reaction [Fatal]
  - Condition aggravated [Fatal]
  - Unresponsive to stimuli [Fatal]
  - Injection site pruritus [Unknown]

NARRATIVE: CASE EVENT DATE: 20150602
